FAERS Safety Report 18252753 (Version 1)
Quarter: 2020Q3

REPORT INFORMATION
  Report Type: Spontaneous
  Country: US (occurrence: US)
  Receive Date: 20200910
  Receipt Date: 20200910
  Transmission Date: 20201103
  Serious: Yes (Hospitalization, Other)
  Sender: FDA-Public Use
  Company Number: None

PATIENT
  Age: 34 Year
  Sex: Female
  Weight: 65.7 kg

DRUGS (2)
  1. NATURE?THROID [Suspect]
     Active Substance: THYROID, PORCINE
     Indication: HYPOTHYROIDISM
     Dosage: ?          OTHER STRENGTH:2.5 GRAIN;?
     Route: 048
     Dates: start: 20100601, end: 20200910
  2. METFORMIN [Concomitant]
     Active Substance: METFORMIN HYDROCHLORIDE

REACTIONS (6)
  - Head injury [None]
  - Seizure [None]
  - Weight increased [None]
  - Fall [None]
  - Syncope [None]
  - Skin laceration [None]

NARRATIVE: CASE EVENT DATE: 20200505
